FAERS Safety Report 20888028 (Version 2)
Quarter: 2022Q3

REPORT INFORMATION
  Report Type: Spontaneous
  Country: US (occurrence: US)
  Receive Date: 20220529
  Receipt Date: 20220804
  Transmission Date: 20221027
  Serious: No
  Sender: FDA-Public Use
  Company Number: US-JNJFOC-20220553650

PATIENT
  Age: 67 Year
  Sex: Female
  Weight: 65.830 kg

DRUGS (22)
  1. OPSUMIT [Suspect]
     Active Substance: MACITENTAN
     Indication: Pulmonary arterial hypertension
     Dosage: 10 MG TAKE 1?TABLET BY MOUTH ONCE A DAY
     Route: 048
     Dates: start: 20210317
  2. ALDACTONE [Concomitant]
     Active Substance: SPIRONOLACTONE
     Indication: Oedema
     Route: 048
  3. AMITRIPTYLINE [Concomitant]
     Active Substance: AMITRIPTYLINE
     Indication: Irritable bowel syndrome
     Dosage: 3 TABLETS AT BEDTIME
     Route: 048
  4. BREO ELLIPTA [Concomitant]
     Active Substance: FLUTICASONE FUROATE\VILANTEROL TRIFENATATE
     Indication: Pulmonary arterial hypertension
     Dosage: 200-25 MCG/DOSE ,
     Route: 065
  5. TUMS [Concomitant]
     Active Substance: CALCIUM CARBONATE
     Indication: Blood calcium decreased
     Dosage: 5 TABLETS DAILY
     Route: 065
  6. GAS-X [Concomitant]
     Active Substance: DIMETHICONE
     Indication: Irritable bowel syndrome
     Dosage: AS NEEDED
     Route: 065
  7. IPRATROPIUM BROMIDE [Concomitant]
     Active Substance: IPRATROPIUM BROMIDE
     Indication: Seasonal allergy
  8. IRON [Concomitant]
     Active Substance: IRON
     Indication: Blood iron decreased
     Dosage: 1 CAPSULE, EXTENDED RELEASE, EVERY?DAY
     Route: 065
  9. JANTOVEN [Concomitant]
     Active Substance: WARFARIN SODIUM
     Indication: Cardiovascular disorder
     Route: 065
  10. LASIX [Concomitant]
     Active Substance: FUROSEMIDE
     Indication: Oedema
     Dosage: 0.5 TABLET PER DAY
     Route: 048
  11. LEVOCETIRIZINE [Concomitant]
     Active Substance: LEVOCETIRIZINE
     Indication: Seasonal allergy
     Dosage: AS NEEDED
     Route: 048
  12. LOTEPREDNOL ETABONATE [Concomitant]
     Active Substance: LOTEPREDNOL ETABONATE
     Indication: Seasonal allergy
     Dosage: 1 DROPS: SUSPENSION, 2 TIMES A DAY
     Route: 065
  13. MAGNESIUM [Concomitant]
     Active Substance: MAGNESIUM
     Indication: Blood magnesium decreased
     Dosage: WITH MEAL
     Route: 048
  14. PANTOPRAZOLE [Concomitant]
     Active Substance: PANTOPRAZOLE
     Indication: Gastrooesophageal reflux disease
     Dosage: 1 TABLET, DELAYED RELEASE (DR/EC), 2?TIMES A DAY?BEFORE BREAKFAST AND DINNER
     Route: 048
  15. PEPCID [Concomitant]
     Active Substance: FAMOTIDINE
     Indication: Gastrooesophageal reflux disease
     Dosage: 2 TIMES A DAY?BEFORE BREAKFAST AND BEFORE DINNER
     Route: 048
  16. POTASSIUM CHLORIDE [Concomitant]
     Active Substance: POTASSIUM CHLORIDE
     Indication: Blood potassium decreased
     Route: 065
  17. PRAVASTATIN [Concomitant]
     Active Substance: PRAVASTATIN
     Indication: Cardiovascular disorder
     Route: 048
  18. PROLIA [Concomitant]
     Active Substance: DENOSUMAB
     Indication: Bone density decreased
     Dosage: 60/1 MG/ML
     Route: 058
  19. RESTASIS [Concomitant]
     Active Substance: CYCLOSPORINE
     Indication: Dry eye
     Dosage: 1 DROPS, 2 TIMES A DAY
     Route: 065
  20. SILDENAFIL [Concomitant]
     Active Substance: SILDENAFIL
     Indication: Pulmonary arterial hypertension
     Route: 065
  21. VITAMIN D2 [Concomitant]
     Active Substance: ERGOCALCIFEROL
     Indication: Vitamin D deficiency
     Dosage: 5000 UNIT
     Route: 065
  22. ONDANSETRON [Concomitant]
     Active Substance: ONDANSETRON
     Indication: Irritable bowel syndrome
     Dosage: 1 TABLET, DISINTEGRATING, EVERY DAY?ON TONGUE AND ALLOW TO DISSOLVE?AS NEEDED
     Route: 048

REACTIONS (2)
  - Ingrowing nail [Unknown]
  - Dyspnoea exertional [Recovered/Resolved]

NARRATIVE: CASE EVENT DATE: 20220522
